FAERS Safety Report 8347682-X (Version None)
Quarter: 2012Q2

REPORT INFORMATION
  Report Type: 
  Country: None (occurrence: None)
  Receive Date: 20120509
  Receipt Date: 20120502
  Transmission Date: 20120825
  Serious: Yes (Disabling, Other)
  Sender: FDA-Public Use
  Company Number: US-MERCK-1110USA02011

PATIENT
  Age: 50 Year
  Sex: Female
  Weight: 57 kg

DRUGS (12)
  1. FOSAMAX PLUS D [Suspect]
     Indication: OSTEOPENIA
     Route: 048
     Dates: start: 20080401
  2. VITAMIN D (UNSPECIFIED) [Concomitant]
     Route: 048
     Dates: start: 20070411
  3. ALENDRONATE SODIUM [Suspect]
     Indication: OSTEOPOROSIS
     Route: 048
  4. CALTRATE 600 PLUS VITAMIN D [Concomitant]
     Route: 048
     Dates: start: 20070403
  5. FOSAMAX [Suspect]
     Route: 048
  6. FOSAMAX [Suspect]
     Indication: OSTEOPOROSIS
     Route: 048
     Dates: start: 20011201, end: 20101001
  7. FOSAMAX [Suspect]
     Indication: OSTEOPENIA
     Route: 048
     Dates: start: 20011201, end: 20101001
  8. FOSAMAX [Suspect]
     Route: 048
     Dates: start: 20000501
  9. FOSAMAX [Suspect]
     Route: 048
     Dates: start: 20000501
  10. FOSAMAX PLUS D [Suspect]
     Indication: OSTEOPOROSIS
     Route: 048
     Dates: start: 20080401
  11. ALENDRONATE SODIUM [Suspect]
     Indication: OSTEOPENIA
     Route: 048
  12. FOSAMAX [Suspect]
     Route: 048

REACTIONS (9)
  - OESTROGEN REPLACEMENT THERAPY [None]
  - DIZZINESS [None]
  - DIVERTICULUM [None]
  - MYOCARDIAL INFARCTION [None]
  - MASS [None]
  - COLONIC POLYP [None]
  - MUSCLE SPASMS [None]
  - HYPERTENSION [None]
  - FEMUR FRACTURE [None]
